FAERS Safety Report 6733820-9 (Version None)
Quarter: 2010Q2

REPORT INFORMATION
  Report Type: 
  Country: None (occurrence: None)
  Receive Date: 20100520
  Receipt Date: 20100512
  Transmission Date: 20101027
  Serious: Yes (Hospitalization, Other)
  Sender: FDA-Public Use
  Company Number: FR-PFIZER INC-2010048675

PATIENT
  Age: 91 Year
  Sex: Male

DRUGS (10)
  1. LYRICA [Suspect]
     Indication: NEURALGIA
     Dosage: 25 MG, 3X/DAY
     Route: 048
     Dates: start: 20100407
  2. NORSET [Concomitant]
  3. LANSOYL [Concomitant]
  4. PARACETAMOL [Concomitant]
  5. LOVENOX [Concomitant]
  6. HYPNOVEL [Concomitant]
  7. GLUCOSE [Concomitant]
  8. PRETERAX [Concomitant]
     Indication: HYPERTENSION
     Dosage: 1 DF, 1X/DAY
     Route: 048
     Dates: start: 20100321, end: 20100414
  9. SEROPLEX [Concomitant]
     Indication: DEPRESSION
     Dosage: 10 MG, 1X/DAY
     Route: 048
     Dates: start: 20100318, end: 20100416
  10. IXPRIM [Concomitant]
     Dosage: UNK
     Dates: end: 20100331

REACTIONS (1)
  - SINUS BRADYCARDIA [None]
